FAERS Safety Report 8310524-2 (Version None)
Quarter: 2012Q2

REPORT INFORMATION
  Report Type: 
  Country: None (occurrence: None)
  Receive Date: 20120425
  Receipt Date: 20120419
  Transmission Date: 20120825
  Serious: Yes (Death)
  Sender: FDA-Public Use
  Company Number: PL-ROCHE-1056656

PATIENT
  Age: 72 Year
  Sex: Male
  Weight: 71.3 kg

DRUGS (1)
  1. MIRCERA [Suspect]
     Indication: ANAEMIA
     Route: 065
     Dates: start: 20120121, end: 20120320

REACTIONS (1)
  - CARDIAC ARREST [None]
